FAERS Safety Report 7228350-4 (Version None)
Quarter: 2011Q1

REPORT INFORMATION
  Report Type: 
  Country: None (occurrence: None)
  Receive Date: 20110114
  Receipt Date: 20110110
  Transmission Date: 20110831
  Serious: Yes (Hospitalization, Other)
  Sender: FDA-Public Use
  Company Number: US-ELI_LILLY_AND_COMPANY-US201101002264

PATIENT
  Sex: Female
  Weight: 64.399 kg

DRUGS (4)
  1. LANTUS [Concomitant]
     Indication: DIABETES MELLITUS
     Dosage: 22 U, EACH EVENING
     Route: 058
  2. SYNTHROID [Concomitant]
  3. METFORMIN HCL [Concomitant]
     Dosage: 2000 MG, UNKNOWN
     Dates: start: 20060101
  4. HUMALOG [Suspect]
     Indication: DIABETES MELLITUS
     Dosage: UNK, AS NEEDED
     Dates: start: 20060101, end: 20100901

REACTIONS (4)
  - WEIGHT DECREASED [None]
  - AUTOIMMUNE THYROIDITIS [None]
  - RASH PRURITIC [None]
  - HYPOGLYCAEMIC SEIZURE [None]
